FAERS Safety Report 23869967 (Version 2)
Quarter: 2024Q2

REPORT INFORMATION
  Report Type: Spontaneous
  Country: US (occurrence: US)
  Receive Date: 20240517
  Receipt Date: 20240607
  Transmission Date: 20240716
  Serious: No
  Sender: FDA-Public Use
  Company Number: US-SA-SAC20240513000176

PATIENT
  Age: 85 Year
  Sex: Female

DRUGS (8)
  1. DUPIXENT [Suspect]
     Active Substance: DUPILUMAB
     Indication: Asthma
     Dosage: 300 MG, QOW
     Route: 058
  2. ACITRETIN [Concomitant]
     Active Substance: ACITRETIN
  3. ALLOPURINOL [Concomitant]
     Active Substance: ALLOPURINOL
  4. ACETAMINOPHEN [Concomitant]
     Active Substance: ACETAMINOPHEN
  5. EZETIMIBE [Concomitant]
     Active Substance: EZETIMIBE
  6. MONTELUKAST [Concomitant]
     Active Substance: MONTELUKAST SODIUM
     Dosage: UNK
  7. PREGABALIN [Concomitant]
     Active Substance: PREGABALIN
  8. ASPIRINE C [Concomitant]

REACTIONS (2)
  - Asthma [Unknown]
  - Impaired quality of life [Unknown]

NARRATIVE: CASE EVENT DATE: 20240401
